FAERS Safety Report 9476204 (Version 5)
Quarter: 2014Q1

REPORT INFORMATION
  Report Type: Report from Study
  Country: US (occurrence: US)
  Receive Date: 20130826
  Receipt Date: 20140213
  Transmission Date: 20141002
  Serious: Yes (Death)
  Sender: FDA-Public Use
  Company Number: US-SANOFI-AVENTIS-2013SA072535

PATIENT
  Sex: Female
  Weight: 56.69 kg

DRUGS (20)
  1. AUBAGIO [Suspect]
     Indication: RELAPSING-REMITTING MULTIPLE SCLEROSIS
     Route: 048
     Dates: start: 20130522
  2. ANALGESICS [Concomitant]
     Indication: PAIN
     Route: 065
  3. IPRATROPIUM BROMIDE [Concomitant]
     Dosage: 0.03 % NASAL SPRAY
     Route: 065
  4. MELOXICAM [Concomitant]
     Route: 065
     Dates: start: 20120606
  5. BETHANECHOL CHLORIDE [Concomitant]
     Route: 065
  6. AMANTADINE [Concomitant]
     Route: 048
     Dates: start: 20120925
  7. AMANTADINE [Concomitant]
     Route: 048
     Dates: start: 20130125
  8. AMANTADINE [Concomitant]
     Route: 048
     Dates: start: 20110214
  9. DETROL [Concomitant]
     Route: 048
  10. METROGEL [Concomitant]
     Route: 061
     Dates: start: 20130423
  11. ADVAIR DISKUS [Concomitant]
     Dosage: 100 MCG-50 MCG/DOSE FOR INHALATION
     Route: 065
     Dates: start: 20121112
  12. TRAMADOL [Concomitant]
     Route: 048
     Dates: start: 20130423
  13. VICODIN ES [Concomitant]
     Indication: PAIN
     Dosage: 7.5 MG-750 MG
     Route: 048
     Dates: start: 20130514
  14. SERTRALINE [Concomitant]
     Route: 065
     Dates: start: 20130412
  15. TIZANIDINE [Concomitant]
     Dosage: 4 MG CAPSULE, 1 CAPSULE(S), PO, BID PRN,
     Route: 048
     Dates: start: 20130228, end: 20130623
  16. METHENAMINE HIPPURATE [Concomitant]
     Route: 048
     Dates: start: 20130128
  17. ALL OTHER THERAPEUTIC PRODUCTS [Concomitant]
     Route: 065
  18. TEMAZEPAM [Concomitant]
     Route: 048
     Dates: start: 20130423
  19. CITALOPRAM [Concomitant]
     Route: 048
     Dates: start: 20130327
  20. BACLOFEN [Concomitant]
     Route: 065
     Dates: start: 20120904

REACTIONS (2)
  - Multiple sclerosis relapse [Fatal]
  - Diarrhoea [Unknown]
